FAERS Safety Report 5304428-7 (Version None)
Quarter: 2007Q2

REPORT INFORMATION
  Report Type: 
  Country: None (occurrence: None)
  Receive Date: 20070416
  Receipt Date: 20070402
  Transmission Date: 20071010
  Serious: Yes (Life-Threatening, Hospitalization)
  Sender: FDA-Public Use
  Company Number: DSA_29675_2007

PATIENT
  Age: 43 Year
  Sex: Female

DRUGS (2)
  1. LORAZEPAM [Suspect]
     Dosage: 50 MG ONCE PO
     Route: 048
     Dates: start: 20070401, end: 20070401
  2. TRAMADOL HCL [Suspect]
     Dosage: 500 MG ONCE PO
     Route: 048
     Dates: start: 20070401, end: 20070401

REACTIONS (4)
  - COLONIC ATONY [None]
  - OVERDOSE [None]
  - SOMNOLENCE [None]
  - SUICIDE ATTEMPT [None]
